FAERS Safety Report 12836462 (Version 2)
Quarter: 2017Q1

REPORT INFORMATION
  Report Type: Report from Study
  Country: DE (occurrence: DE)
  Receive Date: 20161011
  Receipt Date: 20170214
  Transmission Date: 20170428
  Serious: Yes (Other)
  Sender: FDA-Public Use
  Company Number: DE-INCYTE CORPORATION-2013IN002459

PATIENT
  Age: 66 Year
  Sex: Male
  Weight: 86 kg

DRUGS (37)
  1. BELOC-ZOK COMP [Concomitant]
     Active Substance: HYDROCHLOROTHIAZIDE\METOPROLOL SUCCINATE
     Indication: PRODUCT USED FOR UNKNOWN INDICATION
     Dosage: UNK, UNK, UNK
  2. BELOC-ZOK COMP [Concomitant]
     Active Substance: HYDROCHLOROTHIAZIDE\METOPROLOL SUCCINATE
     Dosage: HYDROCHLOROTHIAZIDE 95, METOPROLOL SUCCINATE 12.5
     Route: 065
  3. DELIX PROTECT [Concomitant]
     Dosage: 10 OT, UNK
     Route: 065
  4. TORASEMID [Concomitant]
     Active Substance: TORSEMIDE
     Dosage: UNK UKN, UNK
  5. TORASEMID [Concomitant]
     Active Substance: TORSEMIDE
     Dosage: 10 MG, UNK
     Route: 065
  6. INCB018424 [Suspect]
     Active Substance: RUXOLITINIB
     Dosage: UNKNOWN DOSE, MG/DAY/TWICE
     Route: 048
     Dates: start: 20140522, end: 20140623
  7. INCB018424 [Suspect]
     Active Substance: RUXOLITINIB
     Dosage: UNKNOWN DOSE, MG/DAY/TWICE
     Route: 048
     Dates: start: 20140716, end: 20141005
  8. INCB018424 [Suspect]
     Active Substance: RUXOLITINIB
     Dosage: 20 MG, QD
     Route: 048
     Dates: start: 20141006, end: 20141116
  9. DELIX PROTECT [Concomitant]
     Dosage: 10 OT, UNK
     Route: 065
  10. AMLODIPINE [Concomitant]
     Active Substance: AMLODIPINE BESYLATE
     Dosage: UNK UKN, UNK
  11. ALLOPURINOL. [Concomitant]
     Active Substance: ALLOPURINOL
     Dosage: UNK UKN, UNK
  12. AMLODIPINE [Concomitant]
     Active Substance: AMLODIPINE BESYLATE
     Dosage: 10 OT, UNK
     Route: 065
  13. NEPRESSOL [Concomitant]
     Dosage: UNK UKN, UNK
  14. ALLOPURINOL. [Concomitant]
     Active Substance: ALLOPURINOL
     Indication: PRODUCT USED FOR UNKNOWN INDICATION
     Dosage: UNK
  15. TORASEMID [Concomitant]
     Active Substance: TORSEMIDE
     Dosage: 10 MG, UNK
     Route: 065
  16. KALINOR-BRAUSETABLETTEN [Concomitant]
     Active Substance: POTASSIUM CARBONATE\POTASSIUM CITRATE
     Dosage: UNK
     Route: 065
  17. INCB018424 [Suspect]
     Active Substance: RUXOLITINIB
     Dosage: UNKNOWN DOSE, MG /QD
     Route: 048
     Dates: start: 20160917
  18. ALLOPURINOL. [Concomitant]
     Active Substance: ALLOPURINOL
     Dosage: 300 OT, UNK
     Route: 065
  19. INCB018424 [Suspect]
     Active Substance: RUXOLITINIB
     Dosage: UNKNOWN DOSE, MG/DAY/TWICE
     Route: 048
     Dates: start: 20140318, end: 20140521
  20. DELIX PROTECT [Concomitant]
     Indication: PRODUCT USED FOR UNKNOWN INDICATION
     Dosage: UNK UKN, UNK
  21. AMLODIPINE [Concomitant]
     Active Substance: AMLODIPINE BESYLATE
     Dosage: UNK UKN, UNK
  22. INCB018424 [Suspect]
     Active Substance: RUXOLITINIB
     Indication: MYELOFIBROSIS
     Dosage: 30 MG/DAY/TWICE
     Route: 048
     Dates: start: 20130903
  23. INCB018424 [Suspect]
     Active Substance: RUXOLITINIB
     Dosage: UNKNOWN DOSE, MG/DAY/TWICE
     Route: 048
     Dates: start: 20140624, end: 20140715
  24. INCB018424 [Suspect]
     Active Substance: RUXOLITINIB
     Dosage: UNKNOWN DOSE, MG/DAY/TWICE
     Route: 048
     Dates: start: 20141117, end: 20160603
  25. NEPRESSOL [Concomitant]
     Indication: PRODUCT USED FOR UNKNOWN INDICATION
     Dosage: UNK
     Route: 065
     Dates: start: 200812
  26. KALINOR-BRAUSETABLETTEN [Concomitant]
     Active Substance: POTASSIUM CARBONATE\POTASSIUM CITRATE
     Indication: PRODUCT USED FOR UNKNOWN INDICATION
     Dosage: UNK
  27. KALINOR-BRAUSETABLETTEN [Concomitant]
     Active Substance: POTASSIUM CARBONATE\POTASSIUM CITRATE
     Route: 065
  28. INCB018424 [Suspect]
     Active Substance: RUXOLITINIB
     Dosage: 15 MG, QD
     Route: 048
     Dates: start: 20160604, end: 20160812
  29. INCB018424 [Suspect]
     Active Substance: RUXOLITINIB
     Dosage: UNKNOWN DOSE, MG/DAY/TWICE
     Route: 048
     Dates: start: 20160813, end: 20160916
  30. AMLODIPINE [Concomitant]
     Active Substance: AMLODIPINE BESYLATE
     Indication: PRODUCT USED FOR UNKNOWN INDICATION
     Dosage: UNK
  31. AMLODIPINE [Concomitant]
     Active Substance: AMLODIPINE BESYLATE
     Dosage: 10 OT, UNK
     Route: 065
     Dates: end: 200812
  32. NEPRESSOL [Concomitant]
     Dosage: UNK
     Route: 065
     Dates: start: 200812
  33. ALLOPURINOL. [Concomitant]
     Active Substance: ALLOPURINOL
     Dosage: UNK UKN, UNK
  34. TORASEMID [Concomitant]
     Active Substance: TORSEMIDE
     Indication: PRODUCT USED FOR UNKNOWN INDICATION
     Dosage: UNK
  35. BELOC-ZOK COMP [Concomitant]
     Active Substance: HYDROCHLOROTHIAZIDE\METOPROLOL SUCCINATE
     Dosage: HYDROCHLOROTHIAZIDE 95, METOPROLOL SUCCINATE 12.5
     Route: 065
  36. ALLOPURINOL. [Concomitant]
     Active Substance: ALLOPURINOL
     Dosage: 300 OT, UNK
     Route: 065
  37. KALINOR-BRAUSETABLETTEN [Concomitant]
     Active Substance: POTASSIUM CARBONATE\POTASSIUM CITRATE
     Dosage: 10 MG

REACTIONS (4)
  - Thrombocytopenia [Recovered/Resolved]
  - Leukopenia [Recovered/Resolved]
  - Acne [Not Recovered/Not Resolved]
  - Leukopenia [Recovered/Resolved]

NARRATIVE: CASE EVENT DATE: 20131001
